FAERS Safety Report 6594202-6 (Version None)
Quarter: 2010Q1

REPORT INFORMATION
  Report Type: 
  Country: None (occurrence: None)
  Receive Date: 20100222
  Receipt Date: 20100209
  Transmission Date: 20100710
  Serious: Yes (Hospitalization)
  Sender: FDA-Public Use
  Company Number: US-ROCHE-647771

PATIENT
  Age: 31 Year
  Sex: Female

DRUGS (14)
  1. MYCOPHENOLATE MOFETIL [Suspect]
     Indication: NEOPLASM MALIGNANT
     Route: 065
  2. IPILIMUMAB [Suspect]
     Indication: NEOPLASM MALIGNANT
     Dosage: 188 MG FOR TOTAL OF 3 COURSES
     Route: 042
     Dates: start: 20090313, end: 20090423
  3. IPILIMUMAB [Suspect]
     Route: 042
     Dates: end: 20090515
  4. DEXAMETHASONE [Suspect]
     Indication: NEOPLASM MALIGNANT
     Route: 042
     Dates: start: 20090515
  5. BACTRIM [Concomitant]
  6. FAMCICLOVIR [Concomitant]
  7. OMEPRAZOLE [Concomitant]
  8. SYNTHROID [Concomitant]
  9. DOCUSATE SODIUM [Concomitant]
  10. ONDANSETRON [Concomitant]
  11. CALCIUM CARBONATE [Concomitant]
  12. LEVOTHYROXIN-SODIUM [Concomitant]
  13. MULTI-VITAMIN [Concomitant]
  14. URSODIOL [Concomitant]

REACTIONS (9)
  - ALANINE AMINOTRANSFERASE INCREASED [None]
  - ASPARTATE AMINOTRANSFERASE INCREASED [None]
  - BLOOD ALKALINE PHOSPHATASE INCREASED [None]
  - BLOOD BILIRUBIN INCREASED [None]
  - DECREASED APPETITE [None]
  - LUNG INFILTRATION [None]
  - NAUSEA [None]
  - PNEUMONITIS [None]
  - VOMITING [None]
